FAERS Safety Report 6985924-3 (Version None)
Quarter: 2010Q3

REPORT INFORMATION
  Report Type: 
  Country: None (occurrence: None)
  Receive Date: 20100915
  Receipt Date: 20100903
  Transmission Date: 20110219
  Serious: Yes (Other)
  Sender: FDA-Public Use
  Company Number: US-PFIZER INC-2010111819

PATIENT
  Sex: Male
  Weight: 104 kg

DRUGS (11)
  1. CHANTIX [Suspect]
     Indication: SMOKING CESSATION THERAPY
     Dosage: 0.5 MG, 1X/DAY
     Route: 048
     Dates: start: 20100823, end: 20100825
  2. GEODON [Concomitant]
     Indication: PARANOIA
     Dosage: 80 MG, 2X/DAY
     Route: 048
     Dates: start: 19900101
  3. GEODON [Concomitant]
     Indication: SCHIZOPHRENIA
  4. FLUOXETINE HYDROCHLORIDE [Concomitant]
     Indication: DEPRESSION
     Dosage: 20 MG, 4X/DAY
     Dates: start: 20010101
  5. DESVENLAFAXINE [Concomitant]
     Indication: DEPRESSION
     Dosage: 37.5 MG, 2X/DAY
  6. ISOSORBIDE MONONITRATE [Concomitant]
     Indication: CARDIAC DISORDER
     Dosage: 60 MG, 1X/DAY
     Dates: start: 20010101
  7. NITROGLYCERIN [Concomitant]
     Indication: CARDIAC DISORDER
     Dosage: 0.4 MG, 3X/DAY
  8. LANOXIN [Concomitant]
     Indication: CARDIAC DISORDER
     Dosage: 0.25 MG, 1X/DAY
     Dates: start: 20010101
  9. FUROSEMIDE [Concomitant]
     Indication: CARDIAC DISORDER
     Dosage: 40 MG, 2 TABLETS DAILY
     Route: 048
     Dates: start: 20010101
  10. LANTUS [Concomitant]
     Indication: TYPE 2 DIABETES MELLITUS
     Dosage: 30 IU, UNK
  11. METFORMIN [Concomitant]
     Indication: TYPE 2 DIABETES MELLITUS
     Dosage: 500 MG, 2X/DAY

REACTIONS (3)
  - AGITATION [None]
  - PARANOIA [None]
  - SCHIZOPHRENIA [None]
